FAERS Safety Report 18682202 (Version 1)
Quarter: 2020Q4

REPORT INFORMATION
  Report Type: Spontaneous
  Country: US (occurrence: US)
  Receive Date: 20201230
  Receipt Date: 20201230
  Transmission Date: 20210114
  Serious: Yes (Other)
  Sender: FDA-Public Use
  Company Number: US-CADILA HEALTHCARE LIMITED-US-ZYDUS-059666

PATIENT

DRUGS (13)
  1. HALOPERIDOL. [Suspect]
     Active Substance: HALOPERIDOL
     Indication: TOURETTE^S DISORDER
     Dosage: UNK
     Route: 065
  2. ATORVASTATIN [Suspect]
     Active Substance: ATORVASTATIN
     Indication: TOURETTE^S DISORDER
     Dosage: 10 MILLIGRAM
     Route: 065
  3. PERGOLIDE [Suspect]
     Active Substance: PERGOLIDE
     Indication: TOURETTE^S DISORDER
     Route: 065
  4. CLONIDINE. [Suspect]
     Active Substance: CLONIDINE
     Indication: TOURETTE^S DISORDER
     Dosage: UNK
     Route: 065
  5. AMANTADINE. [Suspect]
     Active Substance: AMANTADINE HYDROCHLORIDE
     Indication: TOURETTE^S DISORDER
     Dosage: 100 MILLIGRAM, TID
     Route: 065
  6. OLANZAPINE. [Suspect]
     Active Substance: OLANZAPINE
     Indication: TOURETTE^S DISORDER
     Dosage: 20 MILLIGRAM, QD
     Route: 065
  7. PAROXETINE. [Suspect]
     Active Substance: PAROXETINE
     Indication: TOURETTE^S DISORDER
     Dosage: 20 MG EVERY MORNING AND 60 MG EVERY EVENING
     Route: 065
  8. GUANFACINE. [Suspect]
     Active Substance: GUANFACINE
     Indication: TOURETTE^S DISORDER
     Dosage: 1 MG EVERY MORNING AND 2 MG EVENRY EVENING
     Route: 065
  9. PIMOZIDE. [Suspect]
     Active Substance: PIMOZIDE
     Indication: TOURETTE^S DISORDER
     Dosage: UNK
     Route: 065
  10. BENZATROPINE [Suspect]
     Active Substance: BENZTROPINE
     Indication: TOURETTE^S DISORDER
     Route: 065
  11. ARIPIPRAZOLE. [Suspect]
     Active Substance: ARIPIPRAZOLE
     Indication: TOURETTE^S DISORDER
     Dosage: 20 MILLIGRAM, QD
     Route: 065
  12. RISPERIDONE. [Suspect]
     Active Substance: RISPERIDONE
     Indication: TOURETTE^S DISORDER
     Route: 065
  13. TOPIRAMATE. [Suspect]
     Active Substance: TOPIRAMATE
     Indication: TOURETTE^S DISORDER
     Dosage: UNK
     Route: 065

REACTIONS (9)
  - Toxicity to various agents [Unknown]
  - Aggression [Unknown]
  - Dry mouth [Unknown]
  - Drug ineffective [Recovering/Resolving]
  - Dystonia [Unknown]
  - Somnolence [Unknown]
  - Hypotension [Unknown]
  - Lethargy [Unknown]
  - Peripheral swelling [Unknown]
